FAERS Safety Report 20165582 (Version 1)
Quarter: 2021Q4

REPORT INFORMATION
  Report Type: Spontaneous
  Country: US (occurrence: US)
  Receive Date: 20211209
  Receipt Date: 20211209
  Transmission Date: 20220303
  Serious: No
  Sender: FDA-Public Use
  Company Number: US-SA-SAC20211203000788

PATIENT
  Age: 15 Year
  Sex: Female

DRUGS (1)
  1. DUPIXENT [Suspect]
     Active Substance: DUPILUMAB
     Indication: Product used for unknown indication
     Dosage: 300 MG,FREQUECY OTHER
     Route: 058
     Dates: start: 20211124

REACTIONS (2)
  - Erythema of eyelid [Unknown]
  - Injection site swelling [Unknown]

NARRATIVE: CASE EVENT DATE: 20211124
